FAERS Safety Report 25840106 (Version 1)
Quarter: 2025Q3

REPORT INFORMATION
  Report Type: Spontaneous
  Country: CN (occurrence: CN)
  Receive Date: 20250924
  Receipt Date: 20250924
  Transmission Date: 20251021
  Serious: Yes (Other)
  Sender: BAXTER
  Company Number: None

PATIENT
  Age: 47 Year
  Sex: Female
  Weight: 75 kg

DRUGS (4)
  1. CYCLOPHOSPHAMIDE [Suspect]
     Active Substance: CYCLOPHOSPHAMIDE
     Indication: Breast cancer female
     Dosage: 1 G, QD (D1)
     Route: 041
     Dates: start: 20250822, end: 20250822
  2. SODIUM CHLORIDE [Suspect]
     Active Substance: SODIUM CHLORIDE
     Dosage: 50 ML, QD (CYCLOPHOSPHAMIDE + 0.9% SODIUM CHLORIDE) (D1)
     Route: 041
     Dates: start: 20250822, end: 20250822
  3. DEXTROSE [Suspect]
     Active Substance: DEXTROSE MONOHYDRATE
     Dosage: 500 ML, QD (DOXORUBICIN HYDROCHLORIDE LIPOSOME + 5% GLUCOSE) (D1)
     Route: 041
     Dates: start: 20250822, end: 20250822
  4. DOXORUBICIN HYDROCHLORIDE [Suspect]
     Active Substance: DOXORUBICIN HYDROCHLORIDE
     Indication: Breast cancer female
     Dosage: 60 MG, QD (D1)
     Route: 041
     Dates: start: 20250822, end: 20250822

REACTIONS (1)
  - Leukopenia [Recovered/Resolved]

NARRATIVE: CASE EVENT DATE: 20250911
